FAERS Safety Report 6370247-6 (Version None)
Quarter: 2009Q3

REPORT INFORMATION
  Report Type: 
  Country: None (occurrence: None)
  Receive Date: 20090921
  Receipt Date: 20090921
  Transmission Date: 20100115
  Serious: No
  Sender: FDA-Public Use
  Company Number: None

PATIENT
  Age: 39 Year
  Sex: Female
  Weight: 71.6683 kg

DRUGS (1)
  1. ABILIFY [Suspect]
     Indication: BIPOLAR II DISORDER
     Dosage: 10 MG 2 TIMES DAILY
     Dates: start: 20090818

REACTIONS (15)
  - CONFUSIONAL STATE [None]
  - DIZZINESS [None]
  - FEELING ABNORMAL [None]
  - GAIT DISTURBANCE [None]
  - HEADACHE [None]
  - HYPERSOMNIA [None]
  - HYPOPHAGIA [None]
  - IMPAIRED WORK ABILITY [None]
  - NAUSEA [None]
  - PHARYNGEAL OEDEMA [None]
  - POOR QUALITY SLEEP [None]
  - RESTLESSNESS [None]
  - SWELLING FACE [None]
  - TREMOR [None]
  - VISION BLURRED [None]
